FAERS Safety Report 10016089 (Version 4)
Quarter: 2015Q2

REPORT INFORMATION
  Report Type: Spontaneous
  Country: US (occurrence: US)
  Receive Date: 20140317
  Receipt Date: 20150617
  Transmission Date: 20150821
  Serious: Yes (Hospitalization, Disabling, Other)
  Sender: FDA-Public Use
  Company Number: US-SANOFI-AVENTIS-2012SA041934

PATIENT
  Age: 50 Year
  Sex: Female

DRUGS (8)
  1. DEXAMETHASONE. [Concomitant]
     Active Substance: DEXAMETHASONE
  2. KEPPRA [Concomitant]
     Active Substance: LEVETIRACETAM
  3. LISINOPRIL. [Concomitant]
     Active Substance: LISINOPRIL
  4. LOPERAMIDE [Concomitant]
     Active Substance: LOPERAMIDE
  5. PLAVIX [Suspect]
     Active Substance: CLOPIDOGREL BISULFATE
     Indication: STENT PLACEMENT
     Route: 048
     Dates: start: 20091001, end: 20091029
  6. ATROVENT [Concomitant]
     Active Substance: IPRATROPIUM BROMIDE
  7. ASPIRIN. [Concomitant]
     Active Substance: ASPIRIN
  8. LANTUS [Concomitant]
     Active Substance: INSULIN GLARGINE
     Route: 058

REACTIONS (13)
  - Anhedonia [Not Recovered/Not Resolved]
  - Multiple injuries [Unknown]
  - Hemiplegia [Unknown]
  - Physical disability [Not Recovered/Not Resolved]
  - Deformity [Not Recovered/Not Resolved]
  - Tension [Not Recovered/Not Resolved]
  - Loss of employment [Not Recovered/Not Resolved]
  - Economic problem [Not Recovered/Not Resolved]
  - Haemorrhage intracranial [Unknown]
  - Joint dislocation [Unknown]
  - Psychological trauma [Not Recovered/Not Resolved]
  - Social problem [Not Recovered/Not Resolved]
  - Anaemia [Unknown]

NARRATIVE: CASE EVENT DATE: 20091002
